FAERS Safety Report 14157135 (Version 2)
Quarter: 2017Q4

REPORT INFORMATION
  Report Type: Spontaneous
  Country: NL (occurrence: NL)
  Receive Date: 20171103
  Receipt Date: 20171228
  Transmission Date: 20180321
  Serious: Yes (Hospitalization)
  Sender: FDA-Public Use
  Company Number: NL-PFIZER INC-2017470826

PATIENT
  Age: 26 Year
  Sex: Female

DRUGS (2)
  1. CYTOTEC [Suspect]
     Active Substance: MISOPROSTOL
     Indication: ABORTION SPONTANEOUS
     Dosage: 200 UG, UNK
     Route: 067
     Dates: start: 20171027, end: 20171027
  2. MIFEGYNE [Concomitant]
     Active Substance: MIFEPRISTONE
     Route: 048
     Dates: start: 201710

REACTIONS (2)
  - Product use in unapproved indication [Recovered/Resolved]
  - Anaphylactic reaction [Recovered/Resolved]

NARRATIVE: CASE EVENT DATE: 20171027
